FAERS Safety Report 15148505 (Version 2)
Quarter: 2019Q2

REPORT INFORMATION
  Report Type: Spontaneous
  Country: US (occurrence: US)
  Receive Date: 20180716
  Receipt Date: 20190429
  Transmission Date: 20190711
  Serious: Yes (Hospitalization)
  Sender: FDA-Public Use
  Company Number: US-PFIZER INC-2018283848

PATIENT
  Age: 50 Year
  Sex: Female

DRUGS (2)
  1. LYRICA [Suspect]
     Active Substance: PREGABALIN
     Indication: NERVE INJURY
     Dosage: 150 MG, DAILY (TAKE ONE CAPSULE EVERY DAY)
     Route: 048
     Dates: start: 2015
  2. LYRICA [Suspect]
     Active Substance: PREGABALIN
     Indication: NEURITIS
     Dosage: 150 MG, 2X/DAY
     Route: 048
     Dates: start: 2017

REACTIONS (3)
  - Abdominal discomfort [Recovered/Resolved]
  - Abdominal distension [Recovered/Resolved]
  - Gastritis [Recovered/Resolved]

NARRATIVE: CASE EVENT DATE: 2018
